FAERS Safety Report 5166265-6 (Version None)
Quarter: 2006Q4

REPORT INFORMATION
  Report Type: 
  Country: None (occurrence: None)
  Receive Date: 20060830
  Receipt Date: 20060603
  Transmission Date: 20070319
  Serious: No
  Sender: FDA-Public Use
  Company Number: 222838

PATIENT
  Age: 42 Year
  Sex: Male
  Weight: 192.7787 kg

DRUGS (7)
  1. XOLAIR [Suspect]
     Indication: ASTHMA
     Dosage: 375 MG Q2W SUBCUTANEOUS
     Route: 058
     Dates: start: 20060203
  2. QVAR 40 [Concomitant]
  3. SINGULAIR (MONTELEUKAST SODIUM) [Concomitant]
  4. ZYRTEC [Concomitant]
  5. NASONEX [Concomitant]
  6. PRILOSEC [Concomitant]
  7. FLOVENT [Concomitant]

REACTIONS (2)
  - FATIGUE [None]
  - HEADACHE [None]
